FAERS Safety Report 21643243 (Version 1)
Quarter: 2022Q4

REPORT INFORMATION
  Report Type: Spontaneous
  Country: DE (occurrence: DE)
  Receive Date: 20221125
  Receipt Date: 20221125
  Transmission Date: 20230113
  Serious: Yes (Hospitalization)
  Sender: FDA-Public Use
  Company Number: DE-ADRED-05678-01

PATIENT
  Age: 41 Year
  Sex: Female
  Weight: 84 kg

DRUGS (6)
  1. VALPROIC ACID [Suspect]
     Active Substance: VALPROIC ACID
     Indication: Product used for unknown indication
     Dosage: 300 MG, 1-0-0.5-0
  2. PIPERAZINE [Suspect]
     Active Substance: PIPERAZINE
     Indication: Product used for unknown indication
     Dosage: NK MG, DISCONTINUED
  3. PERAZINE [Suspect]
     Active Substance: PERAZINE
     Indication: Product used for unknown indication
     Dosage: NK MG, ABGESETZT (NK MG, DISCONTINUED)
  4. ZOPICLONE [Concomitant]
     Active Substance: ZOPICLONE
     Indication: Product used for unknown indication
     Dosage: 7.5 MG, 0-0-0-1
  5. ALPRAZOLAM [Concomitant]
     Active Substance: ALPRAZOLAM
     Indication: Product used for unknown indication
     Dosage: 0.5 MG, IF NECESSARY
  6. CANDESARTAN [Concomitant]
     Active Substance: CANDESARTAN
     Indication: Product used for unknown indication
     Dosage: 8 MG, 0.5-0-0.5-0

REACTIONS (4)
  - Panic reaction [Unknown]
  - Disorientation [Unknown]
  - Nervousness [Unknown]
  - Insomnia [Unknown]
